FAERS Safety Report 23232163 (Version 2)
Quarter: 2023Q4

REPORT INFORMATION
  Report Type: Spontaneous
  Country: US (occurrence: US)
  Receive Date: 20231127
  Receipt Date: 20231225
  Transmission Date: 20240110
  Serious: No
  Sender: FDA-Public Use
  Company Number: US-BAUSCHBL-2023BNL011927

PATIENT
  Age: 66 Year
  Sex: Female
  Weight: 63.95 kg

DRUGS (3)
  1. ALREX [Suspect]
     Active Substance: LOTEPREDNOL ETABONATE
     Indication: Unevaluable event
     Dosage: 1 DROP IN BOTH EYES
     Route: 047
  2. TYLENOL [Concomitant]
     Active Substance: ACETAMINOPHEN
     Indication: Product used for unknown indication
  3. IBUPROFEN [Concomitant]
     Active Substance: IBUPROFEN
     Indication: Product used for unknown indication

REACTIONS (11)
  - Swelling [Recovered/Resolved]
  - Joint stiffness [Recovered/Resolved]
  - Musculoskeletal stiffness [Recovered/Resolved]
  - Nasal oedema [Recovered/Resolved]
  - Fatigue [Recovered/Resolved]
  - Stomatitis [Recovered/Resolved]
  - Ill-defined disorder [Recovered/Resolved]
  - Headache [Recovered/Resolved]
  - Adverse drug reaction [Recovered/Resolved]
  - Chest pain [Recovered/Resolved]
  - Inappropriate schedule of product administration [Unknown]
